FAERS Safety Report 7415083-4 (Version None)
Quarter: 2011Q2

REPORT INFORMATION
  Report Type: 
  Country: None (occurrence: None)
  Receive Date: 20110414
  Receipt Date: 20110322
  Transmission Date: 20111010
  Serious: Yes (Death, Other)
  Sender: FDA-Public Use
  Company Number: US-BAYER-201011971NA

PATIENT
  Sex: Female

DRUGS (11)
  1. TRASYLOL [Suspect]
     Indication: PRODUCT USED FOR UNKNOWN INDICATION
  2. PRILOSEC [Concomitant]
     Dosage: UNK
     Route: 048
     Dates: start: 20030306
  3. PHENAZOPYRIDINE HCL TAB [Concomitant]
     Dosage: 200 MG, UNK
     Route: 048
     Dates: start: 20030303
  4. LEVOTHYROXINE [Concomitant]
     Dosage: 0.05 MG, UNK
     Route: 048
     Dates: start: 20030306
  5. METHYLDOPA [Concomitant]
     Dosage: 250 MG, UNK
     Route: 048
     Dates: start: 20030306
  6. CONJUGATED ESTROGEN [Concomitant]
     Dosage: 1.25 MG, UNK
     Route: 048
  7. DOXEPIN [Concomitant]
     Dosage: 25 MG, UNK
     Route: 048
     Dates: start: 20030127
  8. HYDROCHLOROTHIAZIDE [Concomitant]
     Dosage: UNK
     Route: 048
     Dates: start: 20030306
  9. CLONIDINE [Concomitant]
     Dosage: 0.2 MG, UNK
     Route: 048
     Dates: start: 20030306
  10. AMLODIPINE [Concomitant]
     Dosage: 5 MG, UNK
     Route: 048
     Dates: start: 20030128
  11. METFORMIN [Concomitant]
     Dosage: 500 MG, UNK
     Route: 048
     Dates: start: 20030128

REACTIONS (12)
  - UNEVALUABLE EVENT [None]
  - INJURY [None]
  - RENAL FAILURE [None]
  - PAIN [None]
  - MULTI-ORGAN FAILURE [None]
  - FEAR [None]
  - RENAL INJURY [None]
  - DEATH [None]
  - ANXIETY [None]
  - RENAL IMPAIRMENT [None]
  - EMOTIONAL DISTRESS [None]
  - STRESS [None]
